FAERS Safety Report 6751118-X (Version None)
Quarter: 2010Q2

REPORT INFORMATION
  Report Type: 
  Country: None (occurrence: None)
  Receive Date: 20100602
  Receipt Date: 20100601
  Transmission Date: 20101027
  Serious: Yes (Hospitalization)
  Sender: FDA-Public Use
  Company Number: FR-SANOFI-AVENTIS-2010SA031181

PATIENT
  Age: 46 Year
  Sex: Female

DRUGS (5)
  1. RIFINAH [Suspect]
     Indication: PULMONARY TUBERCULOSIS
     Dosage: DOSE:2 UNIT(S)
     Route: 048
     Dates: start: 20090601, end: 20090803
  2. RIFADIN [Suspect]
     Indication: PULMONARY TUBERCULOSIS
     Route: 048
     Dates: start: 20090803, end: 20090810
  3. ISONIAZID [Concomitant]
     Indication: PULMONARY TUBERCULOSIS
     Dosage: DOSE:2 UNIT(S)
     Route: 048
     Dates: start: 20090601, end: 20090803
  4. DEXAMBUTOL [Concomitant]
     Indication: PULMONARY TUBERCULOSIS
     Dates: start: 20090810
  5. RIMIFON [Concomitant]
     Indication: PULMONARY TUBERCULOSIS
     Route: 048
     Dates: start: 20090810

REACTIONS (2)
  - OESOPHAGITIS [None]
  - PHOTOSENSITIVITY REACTION [None]
